FAERS Safety Report 4660664-4 (Version None)
Quarter: 2005Q2

REPORT INFORMATION
  Report Type: 
  Country: None (occurrence: None)
  Receive Date: 20050512
  Receipt Date: 20050505
  Transmission Date: 20051028
  Serious: Yes (Hospitalization, Other)
  Sender: FDA-Public Use
  Company Number: US-ABBOTT-05P-163-0299941-00

PATIENT
  Age: 9 Year
  Sex: Female
  Weight: 33.596 kg

DRUGS (3)
  1. DEPAKOTE [Suspect]
     Indication: DRUG USE FOR UNKNOWN INDICATION
  2. TOPIRAMATE [Suspect]
     Indication: DRUG USE FOR UNKNOWN INDICATION
     Route: 048
  3. TOPIRAMATE [Suspect]
     Dates: start: 20050324

REACTIONS (3)
  - HEPATIC FUNCTION ABNORMAL [None]
  - OVERDOSE [None]
  - RASH [None]
